FAERS Safety Report 17788270 (Version 2)
Quarter: 2020Q4

REPORT INFORMATION
  Report Type: Spontaneous
  Country: US (occurrence: US)
  Receive Date: 20200515
  Receipt Date: 20201003
  Transmission Date: 20210113
  Serious: No
  Sender: FDA-Public Use
  Company Number: US-LUPIN PHARMACEUTICALS INC.-2020-01875

PATIENT
  Sex: Female

DRUGS (3)
  1. CEPHALEXIN CAPSULES [Suspect]
     Active Substance: CEPHALEXIN
     Indication: MASS
  2. CEPHALEXIN CAPSULES [Suspect]
     Active Substance: CEPHALEXIN
     Indication: TETANUS
     Dosage: 1 DOSAGE FORM, QID
     Route: 065
     Dates: start: 20200403
  3. CEPHALEXIN CAPSULES [Suspect]
     Active Substance: CEPHALEXIN
     Indication: PERIPHERAL SWELLING

REACTIONS (5)
  - Fatigue [Unknown]
  - Flatulence [Unknown]
  - Product solubility abnormal [Unknown]
  - Product physical issue [Unknown]
  - Product odour abnormal [Unknown]

NARRATIVE: CASE EVENT DATE: 20200409
